FAERS Safety Report 7344530-1 (Version None)
Quarter: 2011Q1

REPORT INFORMATION
  Report Type: 
  Country: None (occurrence: None)
  Receive Date: 20110307
  Receipt Date: 20110307
  Transmission Date: 20110831
  Serious: Yes (Life-Threatening)
  Sender: FDA-Public Use
  Company Number: None

PATIENT
  Sex: Male
  Weight: 99.7913 kg

DRUGS (1)
  1. LYRICA [Suspect]
     Indication: PAIN
     Dosage: 50 MG 3 TIMES DAILY PO
     Route: 048
     Dates: start: 20110302, end: 20110303

REACTIONS (20)
  - CHEST PAIN [None]
  - ANXIETY [None]
  - INSOMNIA [None]
  - DRY MOUTH [None]
  - CONFUSIONAL STATE [None]
  - FEELING ABNORMAL [None]
  - DEPRESSION [None]
  - PHARYNGEAL OEDEMA [None]
  - BACK PAIN [None]
  - SWOLLEN TONGUE [None]
  - TINNITUS [None]
  - TREMOR [None]
  - DYSPHAGIA [None]
  - MYALGIA [None]
  - NERVOUSNESS [None]
  - DIZZINESS [None]
  - ABDOMINAL PAIN [None]
  - DYSPNOEA [None]
  - CONDITION AGGRAVATED [None]
  - FATIGUE [None]
